FAERS Safety Report 5496148-3 (Version None)
Quarter: 2007Q4

REPORT INFORMATION
  Report Type: 
  Country: None (occurrence: None)
  Receive Date: 20071018
  Receipt Date: 20070502
  Transmission Date: 20080405
  Serious: Yes (Other)
  Sender: FDA-Public Use
  Company Number: 2007036570

PATIENT
  Age: 62 Year
  Sex: Male

DRUGS (1)
  1. NEURONTIN [Suspect]
     Indication: BACK INJURY
     Dosage: 300 MG
     Dates: start: 20030501, end: 20030101

REACTIONS (6)
  - AFFECT LABILITY [None]
  - BACK PAIN [None]
  - NERVOUSNESS [None]
  - PHARYNGOLARYNGEAL PAIN [None]
  - SOMNOLENCE [None]
  - THINKING ABNORMAL [None]
